FAERS Safety Report 9466443 (Version 2)
Quarter: 2013Q3

REPORT INFORMATION
  Report Type: Spontaneous
  Country: US (occurrence: US)
  Receive Date: 20130820
  Receipt Date: 20130826
  Transmission Date: 20140515
  Serious: Yes (Life-Threatening, Other)
  Sender: FDA-Public Use
  Company Number: US-ASTRAZENECA-2013SE64163

PATIENT
  Sex: 0

DRUGS (4)
  1. SEROQUEL [Suspect]
     Route: 048
  2. SEROQUEL [Suspect]
     Route: 048
  3. LAMICTAL [Suspect]
     Route: 065
  4. LATUDA [Suspect]
     Indication: BLOOD PRESSURE DECREASED
     Route: 065

REACTIONS (7)
  - Stevens-Johnson syndrome [Unknown]
  - Apparent death [Unknown]
  - Rash [Unknown]
  - Pyrexia [Unknown]
  - Blood pressure decreased [Unknown]
  - Weight increased [Unknown]
  - Somnolence [Unknown]
